FAERS Safety Report 13797232 (Version 1)
Quarter: 2017Q3

REPORT INFORMATION
  Report Type: Spontaneous
  Country: US (occurrence: US)
  Receive Date: 20170727
  Receipt Date: 20170727
  Transmission Date: 20171127
  Serious: No
  Sender: FDA-Public Use
  Company Number: US-BIOGEN-2017BI00434002

PATIENT
  Sex: Male

DRUGS (2)
  1. AVONEX [Suspect]
     Active Substance: INTERFERON BETA-1A
     Indication: MULTIPLE SCLEROSIS
     Route: 065
     Dates: start: 20120613
  2. AVONEX [Suspect]
     Active Substance: INTERFERON BETA-1A
     Dates: start: 20120613

REACTIONS (2)
  - Drug dose omission [Unknown]
  - Malaise [Unknown]
